FAERS Safety Report 9729398 (Version 6)
Quarter: 2016Q1

REPORT INFORMATION
  Report Type: Spontaneous
  Country: US (occurrence: US)
  Receive Date: 20131204
  Receipt Date: 20160120
  Transmission Date: 20160526
  Serious: Yes (Hospitalization, Disabling, Other)
  Sender: FDA-Public Use
  Company Number: US-009507513-1312USA001405

PATIENT
  Sex: Female
  Weight: 56.23 kg

DRUGS (2)
  1. FOSAMAX [Suspect]
     Active Substance: ALENDRONATE SODIUM
     Indication: OSTEOPOROSIS
     Dosage: UNK
     Route: 048
     Dates: start: 1999, end: 201005
  2. FOSAMAX [Suspect]
     Active Substance: ALENDRONATE SODIUM
     Dosage: 70 MG, QW
     Route: 048
     Dates: start: 20010706, end: 20050922

REACTIONS (21)
  - Osteoporosis [Not Recovered/Not Resolved]
  - Blood triglycerides increased [Unknown]
  - Nausea [Unknown]
  - Burning sensation [Unknown]
  - Femur fracture [Recovering/Resolving]
  - Vomiting [Unknown]
  - Intramedullary rod insertion [Unknown]
  - Low turnover osteopathy [Not Recovered/Not Resolved]
  - Femur fracture [Unknown]
  - Femur fracture [Recovered/Resolved with Sequelae]
  - Gingival operation [Unknown]
  - Endodontic procedure [Unknown]
  - Sciatica [Unknown]
  - Foot fracture [Recovering/Resolving]
  - Fall [Unknown]
  - Hypothyroidism [Unknown]
  - Tooth extraction [Unknown]
  - Vitamin D deficiency [Unknown]
  - Osteoarthritis [Unknown]
  - Muscular weakness [Unknown]
  - Pruritus [Unknown]

NARRATIVE: CASE EVENT DATE: 2002
